FAERS Safety Report 8161209 (Version 4)
Quarter: 2013Q4

REPORT INFORMATION
  Report Type: Report from Study
  Country: NZ (occurrence: NZ)
  Receive Date: 20110929
  Receipt Date: 20131027
  Transmission Date: 20140711
  Serious: Yes (Death, Hospitalization)
  Sender: FDA-Public Use
  Company Number: PHHY2011NZ85495

PATIENT
  Age: 49 Year
  Sex: Female

DRUGS (3)
  1. CLOZARIL [Suspect]
     Indication: SCHIZOPHRENIA
     Dosage: UNK
     Dates: start: 19970407
  2. CLOZARIL [Suspect]
     Dosage: 900 MG, QD
  3. CLOZARIL [Suspect]
     Dosage: 800 MG, QD

REACTIONS (8)
  - Convulsion [Fatal]
  - Adverse drug reaction [Fatal]
  - Drug level above therapeutic [Fatal]
  - Cardiac disorder [Fatal]
  - Ischaemia [Fatal]
  - Electrocardiogram Q wave abnormal [Fatal]
  - Circulatory collapse [Unknown]
  - Heart rate irregular [Unknown]
